FAERS Safety Report 16693442 (Version 2)
Quarter: 2019Q3

REPORT INFORMATION
  Report Type: Spontaneous
  Country: FR (occurrence: FR)
  Receive Date: 20190812
  Receipt Date: 20190822
  Transmission Date: 20191004
  Serious: Yes (Hospitalization)
  Sender: FDA-Public Use
  Company Number: PHHY2019FR183929

PATIENT
  Age: 79 Year
  Sex: Female
  Weight: 70 kg

DRUGS (1)
  1. STALEVO [Suspect]
     Active Substance: CARBIDOPA\ENTACAPONE\LEVODOPA
     Indication: SUICIDE ATTEMPT
     Dosage: 1 DF, TOTAL
     Route: 048
     Dates: start: 201803, end: 201803

REACTIONS (5)
  - Toxicity to various agents [Recovered/Resolved]
  - Fall [Recovered/Resolved]
  - Suicide attempt [Unknown]
  - Bradyphrenia [Recovered/Resolved]
  - Jaundice [Recovered/Resolved]

NARRATIVE: CASE EVENT DATE: 201803
